FAERS Safety Report 20976219 (Version 1)
Quarter: 2022Q2

REPORT INFORMATION
  Report Type: Spontaneous
  Country: JP (occurrence: JP)
  Receive Date: 20220617
  Receipt Date: 20220617
  Transmission Date: 20220721
  Serious: Yes (Other)
  Sender: FDA-Public Use
  Company Number: JP-PFIZER INC-03H-087-0209908-00

PATIENT
  Age: 72 Year
  Sex: Female

DRUGS (2)
  1. BUPIVACAINE HYDROCHLORIDE [Suspect]
     Active Substance: BUPIVACAINE HYDROCHLORIDE
     Indication: Pain in extremity
     Dosage: 6 MG, 0.125%,  4X/DAY FOR 2 WEEKS
     Route: 008
     Dates: start: 20010701
  2. BUPIVACAINE HYDROCHLORIDE [Suspect]
     Active Substance: BUPIVACAINE HYDROCHLORIDE
     Dosage: 6 MG, 0.125%, 2X/DAY FOR 5 DAYS
     Route: 008

REACTIONS (2)
  - Drug-induced liver injury [Recovered/Resolved]
  - Hypersensitivity [Recovered/Resolved]

NARRATIVE: CASE EVENT DATE: 20010701
